FAERS Safety Report 7269765-8 (Version None)
Quarter: 2011Q1

REPORT INFORMATION
  Report Type: 
  Country: None (occurrence: None)
  Receive Date: 20110124
  Receipt Date: 20110112
  Transmission Date: 20110831
  Serious: Yes (Other)
  Sender: FDA-Public Use
  Company Number: 2009JP000641

PATIENT
  Age: 26 Year
  Sex: Female

DRUGS (23)
  1. CELLCEPT [Concomitant]
  2. FERROMIA (FERROUS SODIUM CITRATE) [Concomitant]
  3. COTRIM [Concomitant]
  4. HALCION [Concomitant]
  5. FLOMOX (CEFCAPENE PIVOXIL HYDROCHLORIDE) [Concomitant]
  6. TACROLIMUS [Suspect]
     Indication: LUPUS NEPHRITIS
     Dosage: 3 MG, /D, ORAL
     Route: 048
     Dates: start: 20070528
  7. ACECOL (TEMOCAPRIL HYDROCHLORIDE) [Concomitant]
  8. ITRACONAZOLE [Concomitant]
  9. MUCODYNE (CARBOCISTEINE) [Concomitant]
  10. WARFARIN (WARFARIN) [Concomitant]
  11. HUSCODE (CHLORPHENAMINE MALEATE, DIHYDROCODEINE PHOSPHATE, METHYLEPHED [Concomitant]
  12. GASTER (FAMOTIDINE) ORODISPERSIBLE CR [Concomitant]
  13. BUFFERIN (ACETYLSALICYLIC AICD, ALUMINIUM GLYCINATE) [Concomitant]
  14. MAGLAX (MAGNESIUM OXIDE) [Concomitant]
  15. DEPAS (ETIZOLAM) [Concomitant]
  16. HUSTAZOL (CLOPERASTINE SODIUM) [Concomitant]
  17. PREDNISOLONE [Suspect]
     Indication: LUPUS NEPHRITIS
     Dosage: 10MG, /D, ORAL; 9 MG, /D, ORAL; 8MG, /D, ORAL; 45MG, /D, ORAL
     Route: 048
     Dates: start: 20100511
  18. PREDNISOLONE [Suspect]
     Indication: LUPUS NEPHRITIS
     Dosage: 10MG, /D, ORAL; 9 MG, /D, ORAL; 8MG, /D, ORAL; 45MG, /D, ORAL
     Route: 048
     Dates: start: 20080428, end: 20100510
  19. PREDNISOLONE [Suspect]
     Indication: LUPUS NEPHRITIS
     Dosage: 10MG, /D, ORAL; 9 MG, /D, ORAL; 8MG, /D, ORAL; 45MG, /D, ORAL
     Route: 048
     Dates: end: 20080324
  20. PREDNISOLONE [Suspect]
     Indication: LUPUS NEPHRITIS
     Dosage: 10MG, /D, ORAL; 9 MG, /D, ORAL; 8MG, /D, ORAL; 45MG, /D, ORAL
     Route: 048
     Dates: start: 20080324, end: 20080428
  21. MICARDIS [Concomitant]
  22. MEVALOTIN (PROVASTATIN SODIUM) [Concomitant]
  23. PROCYLIN (BERAPROST SODIUM) [Concomitant]

REACTIONS (10)
  - IRON DEFICIENCY ANAEMIA [None]
  - NASOPHARYNGITIS [None]
  - INFLUENZA [None]
  - MANIA [None]
  - CONJUNCTIVITIS ALLERGIC [None]
  - GINGIVITIS [None]
  - SEASONAL ALLERGY [None]
  - PULMONARY HYPERTENSION [None]
  - BRONCHITIS [None]
  - GASTROENTERITIS [None]
